FAERS Safety Report 18281704 (Version 2)
Quarter: 2020Q3

REPORT INFORMATION
  Report Type: Spontaneous
  Country: ES (occurrence: ES)
  Receive Date: 20200918
  Receipt Date: 20200921
  Transmission Date: 20201103
  Serious: Yes (Hospitalization)
  Sender: FDA-Public Use
  Company Number: ES-MYLANLABS-2020M1079373

PATIENT
  Age: 62 Year
  Sex: Female

DRUGS (2)
  1. ALENDRONATE [Suspect]
     Active Substance: ALENDRONATE SODIUM
     Dosage: EFFERVESCENT TABLET
     Route: 048
  2. ALENDRONATE [Suspect]
     Active Substance: ALENDRONATE SODIUM
     Indication: OSTEOPOROSIS
     Dosage: 1 DOSAGE FORM, QW, 1 TABLET EVERY 7 DAYS
     Route: 048

REACTIONS (3)
  - Drug intolerance [Recovering/Resolving]
  - Oesophageal ulcer [Recovered/Resolved]
  - Oesophagitis [Recovering/Resolving]
